FAERS Safety Report 5068563-3 (Version None)
Quarter: 2006Q3

REPORT INFORMATION
  Report Type: 
  Country: None (occurrence: None)
  Receive Date: 20060802
  Receipt Date: 20051201
  Transmission Date: 20061208
  Serious: No
  Sender: FDA-Public Use
  Company Number: US-BRISTOL-MYERS SQUIBB COMPANY-13201488

PATIENT
  Age: 83 Year
  Sex: Female
  Weight: 66 kg

DRUGS (7)
  1. COUMADIN [Suspect]
     Indication: HEART RATE INCREASED
     Dosage: DOSE INCREASED ON 11/30/05 TO 5 MG/D X 5 DAYS PER WK AND 7.5 MG/D 2 DAYS PER WK, DURATION: 3 WEEKS
     Dates: start: 20051101
  2. LANOXIN [Concomitant]
  3. TITRALAC [Concomitant]
  4. ACIPHEX [Concomitant]
  5. PREVACID [Concomitant]
  6. ZANTAC [Concomitant]
  7. ACETAMINOPHEN [Concomitant]

REACTIONS (1)
  - INTERNATIONAL NORMALISED RATIO DECREASED [None]
